APPROVED DRUG PRODUCT: ORGOVYX
Active Ingredient: RELUGOLIX
Strength: 120MG
Dosage Form/Route: TABLET;ORAL
Application: N214621 | Product #001
Applicant: SUMITOMO PHARMA AMERICA INC
Approved: Dec 18, 2020 | RLD: Yes | RS: Yes | Type: RX

PATENTS:
Patent 12144809 | Expires: Sep 29, 2037
Patent 11583526 | Expires: Sep 29, 2037
Patent 12336990 | Expires: Sep 29, 2037
Patent 12097198 | Expires: Sep 29, 2037
Patent 10449191 | Expires: Sep 29, 2037
Patent 10786501 | Expires: Sep 29, 2037
Patent 7300935 | Expires: Jan 28, 2029
Patent 11795178 | Expires: Sep 27, 2033
Patent 12325714 | Expires: Sep 27, 2033
Patent 10350170 | Expires: Feb 25, 2036
Patent 8058280 | Expires: Jan 28, 2026